FAERS Safety Report 8118134-7 (Version None)
Quarter: 2012Q1

REPORT INFORMATION
  Report Type: 
  Country: None (occurrence: None)
  Receive Date: 20120207
  Receipt Date: 20120201
  Transmission Date: 20120608
  Serious: Yes (Hospitalization, Other)
  Sender: FDA-Public Use
  Company Number: FR-BRISTOL-MYERS SQUIBB COMPANY-16179970

PATIENT
  Age: 18 Year
  Sex: Female
  Weight: 55 kg

DRUGS (3)
  1. IMOVANE [Concomitant]
     Indication: INSOMNIA
  2. TERCIAN [Concomitant]
     Indication: ANXIETY
  3. ABILIFY [Suspect]
     Indication: ABNORMAL BEHAVIOUR
     Route: 048
     Dates: start: 20111007

REACTIONS (3)
  - ANXIETY [None]
  - DISSOCIATIVE FUGUE [None]
  - SUICIDAL BEHAVIOUR [None]
